FAERS Safety Report 9005398 (Version 1)
Quarter: 2013Q1

REPORT INFORMATION
  Report Type: Spontaneous
  Country: CN (occurrence: CN)
  Receive Date: 20130108
  Receipt Date: 20130108
  Transmission Date: 20140127
  Serious: Yes (Death)
  Sender: FDA-Public Use
  Company Number: CN-PFIZER INC-2013005493

PATIENT
  Age: 42 Year
  Sex: Male

DRUGS (2)
  1. SUTENT [Suspect]
     Indication: RENAL CELL CARCINOMA
     Dosage: 37.5 MG, ONCE DAILY
     Route: 048
     Dates: start: 201207, end: 201210
  2. SUTENT [Suspect]
     Dosage: 25 MG,ONCE DAILY
     Route: 048
     Dates: start: 201207, end: 201210

REACTIONS (5)
  - Disease progression [Fatal]
  - Renal cell carcinoma [Fatal]
  - Cardiopulmonary failure [Fatal]
  - Decreased appetite [Fatal]
  - Malnutrition [Fatal]
